FAERS Safety Report 8701769 (Version 4)
Quarter: 2012Q4

REPORT INFORMATION
  Report Type: 
  Country: JP (occurrence: JP)
  Receive Date: 20120803
  Receipt Date: 20120926
  Transmission Date: 20130627
  Serious: Yes (Hospitalization)
  Sender: FDA-Public Use
  Company Number: PHHY2012JP066021

PATIENT
  Age: 77 Year
  Sex: Female
  Weight: 36 kg

DRUGS (2)
  1. TASIGNA [Suspect]
     Indication: CHRONIC MYELOID LEUKAEMIA
     Dosage: 300 mg, daily
     Route: 048
     Dates: start: 20120620, end: 20120719
  2. ROZEREM [Concomitant]
     Indication: INSOMNIA
     Dosage: 8 mg, UNK
     Route: 048
     Dates: start: 20120713, end: 20120718

REACTIONS (3)
  - Gastric perforation [Recovering/Resolving]
  - Abdominal pain [Recovered/Resolved]
  - Helicobacter test positive [None]
